FAERS Safety Report 12571415 (Version 1)
Quarter: 2016Q3

REPORT INFORMATION
  Report Type: Spontaneous
  Country: CN (occurrence: CN)
  Receive Date: 20160719
  Receipt Date: 20160719
  Transmission Date: 20161109
  Serious: Yes (Hospitalization)
  Sender: FDA-Public Use
  Company Number: CN-IPCA LABORATORIES LIMITED-IPC201607-000602

PATIENT
  Age: 67 Year
  Sex: Male

DRUGS (1)
  1. WARFARIN [Suspect]
     Active Substance: WARFARIN
     Indication: ATRIAL FIBRILLATION

REACTIONS (5)
  - Peritonitis [Recovered/Resolved]
  - Small intestinal obstruction [Recovered/Resolved]
  - Intestinal haematoma [Recovered/Resolved]
  - Gastrointestinal necrosis [Recovered/Resolved]
  - Haemorrhagic infarction [Recovered/Resolved]
